FAERS Safety Report 8785493 (Version 1)
Quarter: 2012Q4

REPORT INFORMATION
  Report Type: 
  Country: US (occurrence: US)
  Receive Date: 20120914
  Receipt Date: 20120914
  Transmission Date: 20130627
  Serious: Yes (Other)
  Sender: FDA-Public Use
  Company Number: US-BAYER-2012-095609

PATIENT
  Sex: Male

DRUGS (1)
  1. BAYER GENUINE ASPIRIN ORIGINAL STRENGTH [Suspect]
     Indication: ISCHAEMIC HEART DISEASE PROPHYLAXIS

REACTIONS (2)
  - Myocardial infarction [None]
  - Therapeutic response unexpected [None]
